FAERS Safety Report 9559691 (Version 1)
Quarter: 2013Q3

REPORT INFORMATION
  Report Type: Spontaneous
  Country: US (occurrence: None)
  Receive Date: 20130913
  Receipt Date: 20130913
  Transmission Date: 20140515
  Serious: Yes (Other)
  Sender: FDA-Public Use
  Company Number: 1000045026

PATIENT
  Age: 77 Year
  Sex: Female
  Weight: 53.52 kg

DRUGS (10)
  1. DALIRESP [Suspect]
     Indication: CHRONIC OBSTRUCTIVE PULMONARY DISEASE
     Route: 048
     Dates: start: 201210
  2. METFORMIN (METFORMIN) (METFORMIN) [Concomitant]
  3. SIMVASTATIN (SIMVASTATIN) (SIMVASTATIN) [Concomitant]
  4. DULERA (DULERA) (DULERA) [Concomitant]
  5. SPIRIVA (TIOTROPIUM BROMIE) (TIOTROPIUM  BROMIDE) [Concomitant]
  6. PROAIR (ALBUTEROL) (ALBUTEROL) [Concomitant]
  7. VIT D (ERGOCACIFEROL) (WRGOCACLIFEROL) [Concomitant]
  8. GLUCOSAMINE (GLUCOSAMINE) (GLUCOSAMINE) [Concomitant]
  9. ARMOUR THYROID (ARMOUR THYROID) [Concomitant]
  10. LOSARTAN/HYROCHLOROTHIAZIDE (HYZAAR (HYZAAR) [Concomitant]

REACTIONS (2)
  - Weight decreased [None]
  - Diarrhoea [None]
